FAERS Safety Report 9148565 (Version 1)
Quarter: 2013Q1

REPORT INFORMATION
  Report Type: Spontaneous
  Country: US (occurrence: None)
  Receive Date: 20130215
  Receipt Date: 20130215
  Transmission Date: 20140127
  Serious: Yes (Death, Hospitalization)
  Sender: FDA-Public Use
  Company Number: 2013-00270

PATIENT
  Age: 87 Year
  Sex: Male

DRUGS (9)
  1. SERTRALINE [Suspect]
     Indication: PRODUCT USED FOR UNKNOWN INDICATION
     Route: 048
  2. OXCARBAZEPINE [Suspect]
     Indication: NEURALGIA
     Route: 048
  3. ASPIRIN(UNKNOWN) [Concomitant]
  4. ATENOLOL(UNKNOWN) [Concomitant]
  5. IPRATROPIUM BROMIDE + ALBUTEROL SULFATE(UNKNOWN) [Concomitant]
  6. FUROSEMIDE(UNKNOWN) [Concomitant]
  7. GABAPENTIN(UNKNOWN) [Concomitant]
  8. GLIPIZIDE(UNKNOWN) [Concomitant]
  9. LEVOFLOXACIN(UNKNOWN) [Concomitant]

REACTIONS (3)
  - Serotonin syndrome [None]
  - Drug interaction [None]
  - Septic shock [None]
